FAERS Safety Report 5158870-8 (Version None)
Quarter: 2006Q4

REPORT INFORMATION
  Report Type: 
  Country: None (occurrence: None)
  Receive Date: 20061117
  Receipt Date: 20061106
  Transmission Date: 20070319
  Serious: Yes (Hospitalization, Other)
  Sender: FDA-Public Use
  Company Number: 2006138432

PATIENT
  Age: 71 Year
  Sex: Female

DRUGS (5)
  1. LIPITOR [Suspect]
     Dosage: 10 MG, ORAL; 20 MG, ORAL
     Route: 048
     Dates: start: 20060901
  2. CARDIZEM CD [Suspect]
     Indication: CHEST PAIN
     Dosage: 120 MG (1 IN 1 D), ORAL
     Route: 048
     Dates: start: 20060913, end: 20061003
  3. XANAX [Concomitant]
  4. TEMAZEPAM [Concomitant]
  5. PREVACID [Concomitant]

REACTIONS (8)
  - DEHYDRATION [None]
  - DIZZINESS [None]
  - DRUG INTERACTION [None]
  - DRY MOUTH [None]
  - DYSPHASIA [None]
  - HEART RATE IRREGULAR [None]
  - PERICARDIAL EFFUSION [None]
  - PNEUMONIA [None]
